FAERS Safety Report 25348256 (Version 1)
Quarter: 2025Q2

REPORT INFORMATION
  Report Type: Report from Study
  Country: US (occurrence: US)
  Receive Date: 20250522
  Receipt Date: 20250522
  Transmission Date: 20250716
  Serious: Yes (Hospitalization)
  Sender: ALEXION PHARMACEUTICALS
  Company Number: US-AstraZeneca-CH-00873936A

PATIENT

DRUGS (1)
  1. FASENRA [Suspect]
     Active Substance: BENRALIZUMAB
     Route: 065

REACTIONS (4)
  - Blood pressure decreased [Unknown]
  - Pyrexia [Unknown]
  - White blood cell count increased [Unknown]
  - Dizziness [Unknown]
